FAERS Safety Report 6085383-1 (Version None)
Quarter: 2009Q1

REPORT INFORMATION
  Report Type: 
  Country: None (occurrence: None)
  Receive Date: 20090220
  Receipt Date: 20090120
  Transmission Date: 20090719
  Serious: No
  Sender: FDA-Public Use
  Company Number: US-BAYER-200814492BCC

PATIENT
  Age: 89 Year
  Sex: Male
  Weight: 77 kg

DRUGS (8)
  1. ALEVE [Suspect]
     Indication: MUSCLE SPASMS
     Dosage: TOTAL DAILY DOSE: 220 MG  UNIT DOSE: 220 MG
     Route: 048
     Dates: start: 20081120
  2. PLAVIX [Concomitant]
  3. COZAAR [Concomitant]
  4. ASPIRIN [Concomitant]
  5. PRAVASTATIN [Concomitant]
  6. METOPROLOL TARTRATE [Concomitant]
  7. VITAMIN B-12 [Concomitant]
  8. CAPTOPRIL [Concomitant]

REACTIONS (1)
  - FOREIGN BODY TRAUMA [None]
